FAERS Safety Report 4586479-3 (Version None)
Quarter: 2005Q1

REPORT INFORMATION
  Report Type: 
  Country: None (occurrence: None)
  Receive Date: 20050218
  Receipt Date: 20041216
  Transmission Date: 20050727
  Serious: Yes (Other)
  Sender: FDA-Public Use
  Company Number: AU-ROCHE-389375

PATIENT
  Age: 54 Year
  Sex: Female
  Weight: 90.2 kg

DRUGS (2)
  1. XENICAL [Suspect]
     Indication: OVERWEIGHT
     Route: 048
     Dates: start: 20041115, end: 20041214
  2. MODURETIC 5-50 [Concomitant]
     Indication: FLUID RETENTION
     Dosage: REPORTED TO HAVE BEEN TAKEN DAILY FOR YEARS.
     Route: 048

REACTIONS (2)
  - LIVER FUNCTION TEST ABNORMAL [None]
  - STEATORRHOEA [None]
